FAERS Safety Report 8100929-7 (Version None)
Quarter: 2012Q1

REPORT INFORMATION
  Report Type: 
  Country: None (occurrence: None)
  Receive Date: 20120129
  Receipt Date: 20111014
  Transmission Date: 20120608
  Serious: No
  Sender: FDA-Public Use
  Company Number: US-ABBOTT-11P-163-0865112-00

PATIENT
  Age: 45 Year
  Sex: Female

DRUGS (4)
  1. HUMIRA [Suspect]
     Indication: PSORIATIC ARTHROPATHY
     Dates: start: 20110801
  2. ABILIFY [Concomitant]
     Indication: DEPRESSION
     Dosage: IN THE MORNING
  3. WELLBUTRIN [Concomitant]
     Indication: DEPRESSION
     Dosage: IN THE MORNING
  4. CELEXA [Concomitant]
     Indication: DEPRESSION
     Dosage: AT NIGHT

REACTIONS (3)
  - INJECTION SITE PAIN [None]
  - INJECTION SITE HAEMATOMA [None]
  - ANXIETY [None]
